FAERS Safety Report 9620238 (Version 2)
Quarter: 2013Q4

REPORT INFORMATION
  Report Type: Spontaneous
  Country: US (occurrence: US)
  Receive Date: 20131014
  Receipt Date: 20131014
  Transmission Date: 20140711
  Serious: No
  Sender: FDA-Public Use
  Company Number: US-ALLERGAN-1311234US

PATIENT
  Age: 62 Year
  Sex: Female

DRUGS (5)
  1. ALPHAGAN P [Suspect]
     Indication: GLAUCOMA
     Dosage: 2 GTT, TID
     Route: 047
  2. XIOPTAN [Concomitant]
     Indication: GLAUCOMA
     Dosage: 2 GTT, UNK
     Route: 047
  3. HORMONE REPLACEMENT THERAPY [Concomitant]
     Indication: PRODUCT USED FOR UNKNOWN INDICATION
  4. ARMOUR THYROID [Concomitant]
     Indication: PRODUCT USED FOR UNKNOWN INDICATION
  5. DECONGESTANT [Concomitant]
     Indication: HYPERSENSITIVITY

REACTIONS (2)
  - Intraocular pressure increased [Recovered/Resolved]
  - Therapeutic response decreased [Unknown]
